FAERS Safety Report 15920396 (Version 2)
Quarter: 2019Q2

REPORT INFORMATION
  Report Type: Spontaneous
  Country: US (occurrence: US)
  Receive Date: 20190205
  Receipt Date: 20190415
  Transmission Date: 20190711
  Serious: Yes (Other)
  Sender: FDA-Public Use
  Company Number: US-GILEAD-2019-0388298

PATIENT
  Age: 62 Year
  Sex: Female

DRUGS (11)
  1. HARVONI [Suspect]
     Active Substance: LEDIPASVIR\SOFOSBUVIR
     Dosage: 1 DF
     Route: 048
     Dates: start: 201901
  2. BUPROPION. [Concomitant]
     Active Substance: BUPROPION
  3. ANASTROZOLE. [Concomitant]
     Active Substance: ANASTROZOLE
  4. OXYMORPHONE HYDROCHLORIDE. [Concomitant]
     Active Substance: OXYMORPHONE HYDROCHLORIDE
  5. HARVONI [Suspect]
     Active Substance: LEDIPASVIR\SOFOSBUVIR
     Indication: CHRONIC HEPATITIS C
     Dosage: 1 DF
     Route: 048
     Dates: start: 201901
  6. SERTRALINE HCL [Concomitant]
     Active Substance: SERTRALINE HYDROCHLORIDE
  7. BACLOFEN. [Concomitant]
     Active Substance: BACLOFEN
  8. IBUPROFEN. [Concomitant]
     Active Substance: IBUPROFEN
  9. MELOXICAM. [Concomitant]
     Active Substance: MELOXICAM
  10. AMLODIPINE BESYLATE. [Concomitant]
     Active Substance: AMLODIPINE BESYLATE
  11. OXYCODONE HYDROCHLORIDE. [Concomitant]
     Active Substance: OXYCODONE HYDROCHLORIDE

REACTIONS (3)
  - Nausea [Recovered/Resolved]
  - Gastric disorder [Recovered/Resolved]
  - Hallucination, visual [Not Recovered/Not Resolved]

NARRATIVE: CASE EVENT DATE: 201901
